FAERS Safety Report 4764549-4 (Version None)
Quarter: 2005Q3

REPORT INFORMATION
  Report Type: 
  Country: None (occurrence: None)
  Receive Date: 20050906
  Receipt Date: 20050825
  Transmission Date: 20060218
  Serious: Yes (Other)
  Sender: FDA-Public Use
  Company Number: 2005120080

PATIENT
  Age: 4 Year
  Sex: Male

DRUGS (1)
  1. BENADRYL [Suspect]
     Indication: ACCIDENTAL EXPOSURE
     Dosage: ONE BOTTLE ONCE, ORAL
     Route: 048
     Dates: start: 20050401, end: 20050401

REACTIONS (2)
  - ACCIDENTAL DRUG INTAKE BY CHILD [None]
  - MALAISE [None]
